FAERS Safety Report 9375648 (Version 2)
Quarter: 2013Q3

REPORT INFORMATION
  Report Type: Spontaneous
  Country: BR (occurrence: BR)
  Receive Date: 20130628
  Receipt Date: 20130705
  Transmission Date: 20140515
  Serious: Yes (Other)
  Sender: FDA-Public Use
  Company Number: BR-PFIZER INC-2013189852

PATIENT
  Age: 68 Year
  Sex: Female
  Weight: 72 kg

DRUGS (6)
  1. LYRICA [Suspect]
     Indication: ARTHRALGIA
     Dosage: UNK, 2X/DAY
     Route: 048
  2. LYRICA [Suspect]
     Indication: JOINT SWELLING
  3. LYRICA [Suspect]
     Indication: PAIN
  4. MATERNA [Concomitant]
     Indication: NUTRITIONAL SUPPLEMENTATION
     Dosage: UNK, ONCE A DAY
     Dates: start: 201208
  5. PURAN T4 [Concomitant]
     Indication: HORMONE REPLACEMENT THERAPY
     Dosage: UNK, ONCE A DAY
     Dates: start: 2004
  6. TYLEX [Concomitant]
     Indication: PAIN
     Dosage: UNK, ONCE A DAY
     Dates: start: 201305

REACTIONS (3)
  - Obesity [Recovered/Resolved]
  - Weight decreased [Unknown]
  - Arthralgia [Not Recovered/Not Resolved]
